FAERS Safety Report 6162805-9 (Version None)
Quarter: 2009Q2

REPORT INFORMATION
  Report Type: 
  Country: None (occurrence: None)
  Receive Date: 20090417
  Receipt Date: 20090403
  Transmission Date: 20091009
  Serious: Yes (Hospitalization)
  Sender: FDA-Public Use
  Company Number: 2009S1006204

PATIENT
  Age: 77 Year
  Sex: Female
  Weight: 88 kg

DRUGS (12)
  1. BISOPROLOL FUMARATE [Suspect]
     Indication: TACHYARRHYTHMIA
     Dosage: 5 MG;ONCE;ORAL ; 2.5 MG;ONCE;ORAL
     Route: 048
     Dates: start: 20080101, end: 20080414
  2. BISOPROLOL FUMARATE [Suspect]
     Indication: TACHYARRHYTHMIA
     Dosage: 5 MG;ONCE;ORAL ; 2.5 MG;ONCE;ORAL
     Route: 048
     Dates: start: 20080414
  3. DIGITOXIN INJ [Suspect]
     Indication: TACHYARRHYTHMIA
     Dosage: 07 MG;5_1_DAY;ORAL ; 0.7 MG;5_1_DAY;ORAL
     Route: 048
     Dates: start: 20080101, end: 20080414
  4. DIGITOXIN INJ [Suspect]
     Indication: TACHYARRHYTHMIA
     Dosage: 07 MG;5_1_DAY;ORAL ; 0.7 MG;5_1_DAY;ORAL
     Route: 048
     Dates: start: 20080418
  5. FALITHROM (PHENPROCOUMON) [Suspect]
     Indication: PULMONARY EMBOLISM
     Dosage: 1.5 MG;5_1_DAY;ORAL ; 3 MG;TWICE A DAY;ORAL
     Route: 048
     Dates: start: 20080101, end: 20080414
  6. FALITHROM (PHENPROCOUMON) [Suspect]
     Indication: PULMONARY EMBOLISM
     Dosage: 1.5 MG;5_1_DAY;ORAL ; 3 MG;TWICE A DAY;ORAL
     Route: 048
     Dates: start: 20080418
  7. ENOXAPARIN SODIUM [Suspect]
     Indication: PULMONARY EMBOLISM
     Dosage: 80 ; ONCE;SUBCUTANEOUS
     Route: 058
     Dates: start: 20080101, end: 20080414
  8. RAMIPRIL [Concomitant]
  9. OMEP [Concomitant]
  10. FUROSEMIDE [Concomitant]
  11. PENTALONG [Concomitant]
  12. PILOCARPINE HCL [Concomitant]

REACTIONS (5)
  - ABDOMINAL WALL HAEMATOMA [None]
  - ATRIAL FIBRILLATION [None]
  - BRADYARRHYTHMIA [None]
  - BRADYCARDIA [None]
  - ELECTROCARDIOGRAM ST SEGMENT DEPRESSION [None]
